FAERS Safety Report 8612635-0 (Version None)
Quarter: 2012Q3

REPORT INFORMATION
  Report Type: 
  Country: None (occurrence: None)
  Receive Date: 20120822
  Receipt Date: 20110915
  Transmission Date: 20120928
  Serious: No
  Sender: FDA-Public Use
  Company Number: US-ASTRAZENECA-2011SE55755

PATIENT
  Age: 65 Year
  Sex: Male

DRUGS (22)
  1. NOVOLIN 70/30 [Concomitant]
     Dosage: 70/30 100 UNITS/ML, INJECT 65 U IN AM AND 60 U IN PM UNITS SQ, TWICE DAILY BEFORE MEALS
     Route: 058
  2. NITROSTAT [Concomitant]
     Dosage: 1 TABLET UNDER THE TONGUE ONCE AS NEEDED FOR ONE DOSE
     Route: 060
  3. MEVACOR [Concomitant]
     Route: 048
  4. SYMBICORT [Suspect]
     Dosage: 80-4.5 MCG, INHALE TWO PUFFS INTO LUNGS, TWO TIMES DAILY
     Route: 055
  5. ZESTRIL [Suspect]
     Route: 048
  6. PREVACID [Concomitant]
     Route: 048
  7. LASIX [Concomitant]
     Route: 048
  8. DUONEB [Concomitant]
     Dosage: 0.5 MG-3 MG/ 3 ML, 3 MLS INH, FOUR TIMES A DAILY
     Route: 055
  9. ATARAX [Concomitant]
     Dosage: ONE TO TWO TABLETS PO QHS PRN
     Route: 048
  10. SOMA [Concomitant]
     Route: 048
  11. ZEGERID OTC [Concomitant]
     Dosage: 20-1.1 MG/GRAM
  12. COMBIVENT [Concomitant]
     Dosage: 18-103 MCG, TWO PUFFS, Q4H PRN
     Route: 055
  13. PLETAL [Concomitant]
     Route: 048
  14. DEPAKOTE [Concomitant]
  15. SPIRIVA WITH HANDIHALER [Concomitant]
     Dosage: 18 MCG, ONE CAPSULE, INH, ONCE DAILY
  16. VENTOLIN HFA [Concomitant]
     Indication: WHEEZING
     Dosage: 90 MCG, INHALE TWO PUFFS INTO LUNGS EVERY FOUR HOURS AS NEEDED
     Route: 055
  17. LOPRESSOR [Concomitant]
     Dosage: 25 MG ONE TABLET, TWICE DAILY
     Route: 048
  18. DOCUSATE SODIUM [Concomitant]
     Indication: FAECES HARD
     Route: 048
  19. ASPIRIN [Concomitant]
     Route: 048
  20. KENALOG [Concomitant]
     Dosage: APPLY THIN LAYER TOP TWICE DAILY
     Route: 061
  21. ZOFRAN [Concomitant]
     Indication: NAUSEA
     Route: 048
  22. IMDUR [Concomitant]
     Route: 048

REACTIONS (3)
  - SLEEP APNOEA SYNDROME [None]
  - CHRONIC OBSTRUCTIVE PULMONARY DISEASE [None]
  - RENAL MASS [None]
